FAERS Safety Report 8369751-0 (Version None)
Quarter: 2012Q2

REPORT INFORMATION
  Report Type: 
  Country: None (occurrence: None)
  Receive Date: 20120518
  Receipt Date: 20120511
  Transmission Date: 20120825
  Serious: Yes (Other)
  Sender: FDA-Public Use
  Company Number: US-BAYER-2012-047485

PATIENT
  Age: 27 Year
  Sex: Female
  Weight: 113.38 kg

DRUGS (10)
  1. SINGULAIR [Concomitant]
     Indication: MYCOTIC ALLERGY
     Dosage: 10 MG, QD
     Dates: start: 20060112
  2. SPIRONOLACTONE [Concomitant]
     Dosage: 25 MG, UNK
     Dates: start: 20060112
  3. NASONEX [Concomitant]
     Dosage: 2 SPRAYS BOTH NOSTRILS EVERY MORNING 50 MCG
     Dates: start: 20051005, end: 20060112
  4. OPTIVAR [Concomitant]
     Dosage: 1 GTT OU
     Dates: start: 20060112
  5. YASMIN [Suspect]
  6. SINGULAIR [Concomitant]
     Indication: HOUSE DUST ALLERGY
     Dosage: 10 MG, QD
     Dates: start: 20051129
  7. NASONEX [Concomitant]
     Dosage: 2 SPRAYS BOTH NOSTRILS 25 MCG  OM
     Dates: start: 20051201
  8. TOPAMAX [Concomitant]
     Indication: MIGRAINE
     Dosage: 25 MG, QD
     Dates: start: 20060112
  9. LEVAQUIN [Concomitant]
     Dosage: 500 MG, UNK
     Dates: start: 20051123
  10. SPIRONOLACTONE [Concomitant]
     Dosage: 25 MG, QD
     Dates: start: 20051129

REACTIONS (1)
  - DEEP VEIN THROMBOSIS [None]
